FAERS Safety Report 12444149 (Version 1)
Quarter: 2016Q2

REPORT INFORMATION
  Report Type: Spontaneous
  Country: US (occurrence: US)
  Receive Date: 20160607
  Receipt Date: 20160607
  Transmission Date: 20160815
  Serious: No
  Sender: FDA-Public Use
  Company Number: US-SA-2016SA058128

PATIENT
  Sex: Female

DRUGS (2)
  1. TOUJEO [Suspect]
     Active Substance: INSULIN GLARGINE
     Route: 065
  2. SOLOSTAR [Concomitant]
     Active Substance: DEVICE
     Route: 065

REACTIONS (6)
  - Swelling [Unknown]
  - Blood potassium decreased [Unknown]
  - Palpitations [Recovering/Resolving]
  - Swelling face [Unknown]
  - Dyspnoea [Unknown]
  - Eye swelling [Unknown]
